FAERS Safety Report 7203917-8 (Version None)
Quarter: 2010Q4

REPORT INFORMATION
  Report Type: 
  Country: None (occurrence: None)
  Receive Date: 20101220
  Receipt Date: 20101206
  Transmission Date: 20110411
  Serious: Yes (Death)
  Sender: FDA-Public Use
  Company Number: CLOF-1000836

PATIENT
  Age: 66 Year
  Sex: Male
  Weight: 58.6 kg

DRUGS (9)
  1. CLOFARABINE TABLET [Suspect]
     Indication: MYELODYSPLASTIC SYNDROME
     Dosage: 25 MG, QD, ORAL, 25 MG ORAL
     Route: 048
     Dates: start: 20091116, end: 20091120
  2. CLOFARABINE TABLET [Suspect]
     Indication: MYELODYSPLASTIC SYNDROME
     Dosage: 25 MG, QD, ORAL, 25 MG ORAL
     Route: 048
     Dates: start: 20091221, end: 20091225
  3. FLUCONAZOLE [Concomitant]
  4. POTASSIUM CHLORIDE [Concomitant]
  5. CIPROFLOXACIN [Concomitant]
  6. ALDACTONE [Concomitant]
  7. DIPHENHYDRAMINE, COMBINATIONS UNK [Concomitant]
  8. NYSTATIN [Concomitant]
  9. PRILOSEC (OMEPRAZOLE) [Concomitant]

REACTIONS (3)
  - FEBRILE NEUTROPENIA [None]
  - HYPERBILIRUBINAEMIA [None]
  - HYPOKALAEMIA [None]
